FAERS Safety Report 13421758 (Version 1)
Quarter: 2017Q2

REPORT INFORMATION
  Report Type: Spontaneous
  Country: PL (occurrence: PL)
  Receive Date: 20170410
  Receipt Date: 20170410
  Transmission Date: 20170830
  Serious: Yes (Other)
  Sender: FDA-Public Use
  Company Number: PL-LUPIN PHARMACEUTICALS INC.-2017-01642

PATIENT
  Sex: Female

DRUGS (7)
  1. CYCLOSPORINE A [Interacting]
     Active Substance: CYCLOSPORINE
     Indication: PROPHYLAXIS
     Dosage: UNK
     Route: 042
  2. METHOTREXATE. [Concomitant]
     Active Substance: METHOTREXATE
     Indication: PROPHYLAXIS
     Dosage: UNK
     Route: 042
  3. VORICONAZOLE. [Suspect]
     Active Substance: VORICONAZOLE
     Indication: INFECTION PROPHYLAXIS
     Dosage: UNK
     Route: 042
  4. OMEPRAZOLE. [Interacting]
     Active Substance: OMEPRAZOLE
     Indication: PROPHYLAXIS
     Dosage: UNK
     Route: 065
  5. ACYCLOVIR. [Concomitant]
     Active Substance: ACYCLOVIR
     Indication: INFECTION PROPHYLAXIS
     Dosage: UNK
     Route: 048
  6. FLUCONAZOLE. [Concomitant]
     Active Substance: FLUCONAZOLE
     Indication: INFECTION PROPHYLAXIS
     Dosage: UNK
     Route: 048
  7. GANCICLOVIR. [Concomitant]
     Active Substance: GANCICLOVIR
     Indication: INFECTION PROPHYLAXIS
     Dosage: UNK
     Route: 042

REACTIONS (9)
  - Drug level increased [Unknown]
  - Ataxia [Unknown]
  - Constipation [Unknown]
  - Aphasia [Unknown]
  - Dermatitis exfoliative [Unknown]
  - Rash [Unknown]
  - Vertigo [Unknown]
  - Vomiting [Unknown]
  - Drug interaction [Unknown]
